FAERS Safety Report 6253335-4 (Version None)
Quarter: 2009Q3

REPORT INFORMATION
  Report Type: 
  Country: None (occurrence: None)
  Receive Date: 20090701
  Receipt Date: 20090622
  Transmission Date: 20100115
  Serious: Yes (Other)
  Sender: FDA-Public Use
  Company Number: PHHY2008VE11713

PATIENT
  Sex: Female

DRUGS (6)
  1. ACLASTA [Suspect]
     Indication: OSTEOPOROSIS
     Dosage: 5 MG, ANNUALLY
     Route: 042
     Dates: start: 20080616
  2. GLUCOFAGE [Concomitant]
     Dosage: 500 MG, QD
  3. BISOPROLOL FUMARATE [Concomitant]
     Dosage: 1.25 MG, QD
  4. VUSCOBRAS [Concomitant]
     Dosage: 10 MG, QD
  5. PANTOP [Concomitant]
     Dosage: 20 MG, QD
  6. IDEOS [Concomitant]
     Route: 048

REACTIONS (4)
  - CYSTITIS [None]
  - DISCOMFORT [None]
  - INFLUENZA LIKE ILLNESS [None]
  - PYREXIA [None]
